FAERS Safety Report 4619764-7 (Version None)
Quarter: 2005Q1

REPORT INFORMATION
  Report Type: 
  Country: None (occurrence: None)
  Receive Date: 20050325
  Receipt Date: 20041130
  Transmission Date: 20050727
  Serious: Yes (Life-Threatening, Hospitalization)
  Sender: FDA-Public Use
  Company Number: US-MERCK-0412USA00086

PATIENT
  Age: 80 Year
  Sex: Male

DRUGS (5)
  1. VIOXX [Suspect]
     Indication: ARTHRALGIA
     Route: 048
     Dates: start: 20010101, end: 20020101
  2. VIOXX [Suspect]
     Indication: OSTEOARTHRITIS
     Route: 048
     Dates: start: 20010101, end: 20020101
  3. PRILOSEC [Concomitant]
     Route: 065
  4. TEVETEN [Concomitant]
     Route: 065
  5. VICODIN [Concomitant]
     Route: 065

REACTIONS (4)
  - ADVERSE EVENT [None]
  - HAEMORRHAGE [None]
  - PEPTIC ULCER [None]
  - UPPER GASTROINTESTINAL HAEMORRHAGE [None]
